FAERS Safety Report 7757778-9 (Version None)
Quarter: 2011Q3

REPORT INFORMATION
  Report Type: 
  Country: None (occurrence: None)
  Receive Date: 20110918
  Receipt Date: 20110907
  Transmission Date: 20111222
  Serious: Yes (Hospitalization, Other)
  Sender: FDA-Public Use
  Company Number: US-ASTRAZENECA-2011SE53569

PATIENT
  Age: 82 Year
  Sex: Male
  Weight: 68 kg

DRUGS (7)
  1. CRESTOR [Suspect]
     Indication: BLOOD CHOLESTEROL ABNORMAL
     Route: 048
     Dates: start: 20080101
  2. ASPIRIN [Concomitant]
  3. FLOMAX [Concomitant]
     Dosage: 1 TAB
  4. PULMICORT FLEXHALER [Suspect]
     Route: 055
  5. CARDIAZEM [Concomitant]
     Indication: BLOOD PRESSURE ABNORMAL
  6. NEOSPAM [Concomitant]
  7. CRESTOR [Suspect]
     Route: 048

REACTIONS (6)
  - INFECTION [None]
  - GALLBLADDER DISORDER [None]
  - MACULAR DEGENERATION [None]
  - BLINDNESS [None]
  - ABDOMINAL HERNIA [None]
  - INTESTINAL OBSTRUCTION [None]
